FAERS Safety Report 19903308 (Version 1)
Quarter: 2021Q4

REPORT INFORMATION
  Report Type: Spontaneous
  Country: CH (occurrence: CH)
  Receive Date: 20211001
  Receipt Date: 20211001
  Transmission Date: 20220303
  Serious: Yes (Other)
  Sender: FDA-Public Use
  Company Number: CH-AMGEN-SWZSP2021148985

PATIENT
  Sex: Female

DRUGS (2)
  1. PROLIA [Suspect]
     Active Substance: DENOSUMAB
     Indication: Product used for unknown indication
     Dosage: UNK
     Route: 065
  2. TERIPARATIDE [Concomitant]
     Active Substance: TERIPARATIDE
     Dosage: UNK

REACTIONS (2)
  - Spinal fracture [Unknown]
  - Adverse event [Unknown]
